FAERS Safety Report 4585406-2 (Version None)
Quarter: 2005Q1

REPORT INFORMATION
  Report Type: 
  Country: None (occurrence: None)
  Receive Date: 20050214
  Receipt Date: 20040909
  Transmission Date: 20050727
  Serious: Yes (Hospitalization)
  Sender: FDA-Public Use
  Company Number: 05-209

PATIENT
  Age: 48 Year
  Sex: Female

DRUGS (26)
  1. DEXAMETHASONE [Suspect]
     Indication: MULTIPLE MYELOMA
     Dosage: 40 MG/DAY, INTRAVENOUS AND ORAL
     Route: 042
     Dates: start: 20021101, end: 20030409
  2. VIOXX [Concomitant]
  3. VICOPROPHEN [Concomitant]
  4. INDOCIN SR INSULIN [Concomitant]
  5. WARFARIN [Concomitant]
  6. ENALAPRIL [Concomitant]
  7. SENNA [Concomitant]
  8. HYDROCODONE/ACETAMINOPHEN [Concomitant]
  9. ALLOPURINOL [Concomitant]
  10. INDOMETHACIN [Concomitant]
  11. ROFECOXIB [Concomitant]
  12. ACETYLSALICYLIC ACID [Concomitant]
  13. FAMOTIDINE [Concomitant]
  14. CARVEDILOL [Concomitant]
  15. ZOLPIDEM TARTRATE [Concomitant]
  16. VINCRISTINE [Concomitant]
  17. DOXORUBICIN [Concomitant]
  18. INTERFERON [Concomitant]
  19. EPOETIN ALFA [Concomitant]
  20. AZITHROMYCIN [Concomitant]
  21. FEXOFENADINE HCL [Concomitant]
  22. OXYCODONE [Concomitant]
  23. POTASSIUM CHLORIDE [Concomitant]
  24. PAMIDRONATE DISODIUM [Concomitant]
  25. POTASSIUM CHLORIDE [Concomitant]
  26. GENASENSE [Concomitant]

REACTIONS (5)
  - HEPATIC FAILURE [None]
  - HYPERSOMNIA [None]
  - HYPONATRAEMIA [None]
  - ORAL INTAKE REDUCED [None]
  - RENAL FAILURE ACUTE [None]
